FAERS Safety Report 9382725 (Version 1)
Quarter: 2013Q3

REPORT INFORMATION
  Report Type: Spontaneous
  Country: DE (occurrence: DE)
  Receive Date: 20130703
  Receipt Date: 20130703
  Transmission Date: 20140515
  Serious: Yes (Other)
  Sender: FDA-Public Use
  Company Number: DE-ACTELION-A-CH2013-85237

PATIENT
  Sex: Female

DRUGS (2)
  1. ZAVESCA [Suspect]
     Indication: NIEMANN-PICK DISEASE
     Dosage: 500 MG, QD
     Route: 048
  2. ZAVESCA [Suspect]
     Dosage: 300 MG, QD
     Route: 048

REACTIONS (4)
  - Lethargy [Unknown]
  - Motor dysfunction [Unknown]
  - Gait disturbance [Unknown]
  - Constipation [Unknown]
